FAERS Safety Report 4998957-3 (Version None)
Quarter: 2006Q2

REPORT INFORMATION
  Report Type: 
  Country: None (occurrence: None)
  Receive Date: 20060510
  Receipt Date: 20060307
  Transmission Date: 20061013
  Serious: Yes (Hospitalization, Disabling)
  Sender: FDA-Public Use
  Company Number: US-MERCK-0603USA01386

PATIENT
  Age: 53 Year
  Sex: Female
  Weight: 72 kg

DRUGS (4)
  1. VIOXX [Suspect]
     Indication: ARTHRITIS
     Route: 048
     Dates: start: 20030301, end: 20040901
  2. PREMPRO [Concomitant]
     Route: 065
  3. AVANDIA [Concomitant]
     Route: 065
  4. ZIAC [Concomitant]
     Route: 065

REACTIONS (2)
  - BACK INJURY [None]
  - MYOCARDIAL INFARCTION [None]
